FAERS Safety Report 18054963 (Version 1)
Quarter: 2020Q3

REPORT INFORMATION
  Report Type: Spontaneous
  Country: US (occurrence: US)
  Receive Date: 20200722
  Receipt Date: 20200722
  Transmission Date: 20201103
  Serious: No
  Sender: FDA-Public Use
  Company Number: US-NXDC-GLE-0032-2020

PATIENT
  Age: 73 Year
  Sex: Female
  Weight: 47.73 kg

DRUGS (3)
  1. DECADRON [Concomitant]
     Active Substance: DEXAMETHASONE
  2. GLEOLAN [Suspect]
     Active Substance: AMINOLEVULINIC ACID HYDROCHLORIDE
     Indication: PHOTODYNAMIC DIAGNOSTIC PROCEDURE
     Dosage: 950 MG
     Dates: start: 20200617, end: 20200617
  3. CEFAZOLIN [Concomitant]
     Active Substance: CEFAZOLIN

REACTIONS (1)
  - Erythema [Not Recovered/Not Resolved]

NARRATIVE: CASE EVENT DATE: 20200701
